FAERS Safety Report 6913214-3 (Version None)
Quarter: 2010Q3

REPORT INFORMATION
  Report Type: 
  Country: None (occurrence: None)
  Receive Date: 20100808
  Receipt Date: 20100728
  Transmission Date: 20110219
  Serious: Yes (Death)
  Sender: FDA-Public Use
  Company Number: AU-BAYER-201032023GPV

PATIENT
  Age: 72 Year
  Sex: Female

DRUGS (6)
  1. BETAFERON [Suspect]
     Indication: MULTIPLE SCLEROSIS
     Route: 058
     Dates: start: 19961101
  2. CYMBALTA [Concomitant]
     Route: 048
  3. DITROPAN [Concomitant]
     Indication: CYSTITIS
     Route: 048
  4. BACLOFEN [Concomitant]
  5. EPILEM [Concomitant]
  6. ASPIRIN [Concomitant]

REACTIONS (2)
  - FALL [None]
  - HEAD INJURY [None]
